FAERS Safety Report 18273744 (Version 2)
Quarter: 2020Q4

REPORT INFORMATION
  Report Type: Spontaneous
  Country: US (occurrence: US)
  Receive Date: 20200916
  Receipt Date: 20201020
  Transmission Date: 20210113
  Serious: Yes (Hospitalization, Disabling)
  Sender: FDA-Public Use
  Company Number: US-TAKEDA-2020TUS038679

PATIENT
  Age: 82 Year
  Sex: Female
  Weight: 72.56 kg

DRUGS (5)
  1. NINLARO [Suspect]
     Active Substance: IXAZOMIB CITRATE
     Indication: PLASMA CELL MYELOMA
     Dosage: 4 MILLIGRAM
     Route: 048
     Dates: start: 20200814
  2. DULOXETINE. [Concomitant]
     Active Substance: DULOXETINE
  3. REVLIMID [Concomitant]
     Active Substance: LENALIDOMIDE
  4. NORTRIPTYLIN [Concomitant]
     Active Substance: NORTRIPTYLINE
  5. DEXAMETHASONE. [Suspect]
     Active Substance: DEXAMETHASONE
     Indication: PLASMA CELL MYELOMA
     Dosage: UNK
     Route: 065

REACTIONS (2)
  - Walking disability [Unknown]
  - Oedema [Unknown]

NARRATIVE: CASE EVENT DATE: 20201015
